FAERS Safety Report 13662289 (Version 1)
Quarter: 2017Q2

REPORT INFORMATION
  Report Type: Report from Study
  Country: US (occurrence: US)
  Receive Date: 20170617
  Receipt Date: 20170617
  Transmission Date: 20170830
  Serious: Yes (Death, Hospitalization)
  Sender: FDA-Public Use
  Company Number: US-TORRENT-00003106

PATIENT
  Age: 43 Year
  Sex: Female

DRUGS (12)
  1. TRAMADOL. [Suspect]
     Active Substance: TRAMADOL
  2. OXYCODONE [Suspect]
     Active Substance: OXYCODONE
  3. AMLODIPINE [Suspect]
     Active Substance: AMLODIPINE BESYLATE
  4. PROPRANOLOL [Suspect]
     Active Substance: PROPRANOLOL HYDROCHLORIDE
  5. VENLAFAXINE [Suspect]
     Active Substance: VENLAFAXINE HYDROCHLORIDE
  6. CODEINE [Suspect]
     Active Substance: CODEINE
  7. PARACETAMOL [Suspect]
     Active Substance: ACETAMINOPHEN
  8. DOXYLAMINE [Suspect]
     Active Substance: DOXYLAMINE
  9. HYDROCODONE [Suspect]
     Active Substance: HYDROCODONE
  10. CLONIDINE. [Suspect]
     Active Substance: CLONIDINE
  11. ZOLPIDEM [Suspect]
     Active Substance: ZOLPIDEM\ZOLPIDEM TARTRATE
  12. ALPRAZOLAM. [Suspect]
     Active Substance: ALPRAZOLAM

REACTIONS (4)
  - Intentional overdose [None]
  - Toxicity to various agents [Fatal]
  - Cardio-respiratory arrest [Fatal]
  - Completed suicide [Fatal]
